FAERS Safety Report 7058748-9 (Version None)
Quarter: 2010Q4

REPORT INFORMATION
  Report Type: 
  Country: None (occurrence: None)
  Receive Date: 20101022
  Receipt Date: 20101018
  Transmission Date: 20110411
  Serious: Yes (Death, Hospitalization)
  Sender: FDA-Public Use
  Company Number: US-GENZYME-MOZO-1000413

PATIENT
  Sex: Male

DRUGS (2)
  1. MOZOBIL [Suspect]
     Indication: ACUTE LYMPHOCYTIC LEUKAEMIA
     Dosage: 6 MG, ONCE
     Route: 042
     Dates: start: 20100917, end: 20100917
  2. ACICLOVIR [Concomitant]
     Indication: ANTIVIRAL PROPHYLAXIS
     Dosage: 1940 MG/DAY, QD
     Route: 042
     Dates: start: 20100923, end: 20101002

REACTIONS (2)
  - PARAINFLUENZAE VIRUS INFECTION [None]
  - RESPIRATORY FAILURE [None]
